FAERS Safety Report 10663386 (Version 2)
Quarter: 2015Q1

REPORT INFORMATION
  Report Type: Spontaneous
  Country: US (occurrence: US)
  Receive Date: 20141218
  Receipt Date: 20150127
  Transmission Date: 20150720
  Serious: No
  Sender: FDA-Public Use
  Company Number: US-GLAXOSMITHKLINE-US2014GSK037647

PATIENT
  Age: 72 Year
  Sex: Male

DRUGS (1)
  1. LOVAZA [Suspect]
     Active Substance: OMEGA-3-ACID ETHYL ESTERS
     Indication: BLOOD TRIGLYCERIDES INCREASED
     Dosage: 1 G, U
     Dates: start: 20101026

REACTIONS (5)
  - Device breakage [Unknown]
  - Blood triglycerides increased [Unknown]
  - Denture wearer [Unknown]
  - Dental operation [Unknown]
  - Bronchitis [Unknown]

NARRATIVE: CASE EVENT DATE: 201405
